FAERS Safety Report 4628675-2 (Version None)
Quarter: 2005Q1

REPORT INFORMATION
  Report Type: 
  Country: None (occurrence: None)
  Receive Date: 20050107
  Receipt Date: 20041001
  Transmission Date: 20050727
  Serious: No
  Sender: FDA-Public Use
  Company Number: 234984K04USA

PATIENT
  Age: 30 Year
  Sex: Female

DRUGS (1)
  1. REBIF [Suspect]
     Indication: MULTIPLE SCLEROSIS
     Dates: start: 20040801

REACTIONS (7)
  - ABDOMINAL DISTENSION [None]
  - FLATULENCE [None]
  - FLUID RETENTION [None]
  - GENERALISED OEDEMA [None]
  - INJECTION SITE PAIN [None]
  - MALAISE [None]
  - WEIGHT INCREASED [None]
